FAERS Safety Report 8030473-7 (Version None)
Quarter: 2012Q1

REPORT INFORMATION
  Report Type: 
  Country: None (occurrence: None)
  Receive Date: 20120109
  Receipt Date: 20120105
  Transmission Date: 20120608
  Serious: No
  Sender: FDA-Public Use
  Company Number: US-B.I. PHARMACEUTICALS,INC./RIDGEFIELD-2012-BP-00261BP

PATIENT
  Sex: Male

DRUGS (5)
  1. LISINOPRIL [Concomitant]
     Indication: BLOOD PRESSURE
     Dosage: 10 MG
     Route: 048
     Dates: start: 19850101
  2. LIPITOR [Concomitant]
     Indication: BLOOD CHOLESTEROL INCREASED
     Dosage: 10 MG
     Route: 048
     Dates: start: 20000101
  3. NORVASC [Concomitant]
     Indication: BLOOD PRESSURE
     Dosage: 5 MG
     Route: 048
     Dates: start: 19850101
  4. PRADAXA [Suspect]
     Indication: ATRIAL FIBRILLATION
     Dosage: 300 MG
     Route: 048
     Dates: start: 20111018
  5. ZINC [Concomitant]
     Indication: SUPPLEMENTATION THERAPY
     Route: 048
     Dates: start: 20000101

REACTIONS (2)
  - CHEST DISCOMFORT [None]
  - DIZZINESS [None]
